FAERS Safety Report 19522042 (Version 1)
Quarter: 2021Q3

REPORT INFORMATION
  Report Type: Spontaneous
  Country: JP (occurrence: JP)
  Receive Date: 20210712
  Receipt Date: 20210712
  Transmission Date: 20211014
  Serious: Yes (Other)
  Sender: FDA-Public Use
  Company Number: JP-009507513-2107JPN000340J

PATIENT
  Age: 91 Year
  Sex: Female

DRUGS (1)
  1. BELSOMRA [Suspect]
     Active Substance: SUVOREXANT
     Indication: INSOMNIA
     Dosage: 7.5 MILLIGRAM
     Route: 048

REACTIONS (3)
  - Renal impairment [Unknown]
  - Intentional underdose [Unknown]
  - Intentional product misuse [Unknown]
